FAERS Safety Report 10022942 (Version 1)
Quarter: 2014Q1

REPORT INFORMATION
  Report Type: Spontaneous
  Country: US (occurrence: US)
  Receive Date: 20140319
  Receipt Date: 20140319
  Transmission Date: 20141002
  Serious: No
  Sender: FDA-Public Use
  Company Number: US-SA-2014SA019400

PATIENT
  Age: 67 Year
  Sex: Female

DRUGS (4)
  1. NASACORT ALLERGY [Suspect]
     Indication: HYPERSENSITIVITY
     Route: 065
     Dates: start: 20140212
  2. BACTRIM [Concomitant]
     Indication: SINUSITIS
  3. PSEUDOEPHEDRINE [Concomitant]
  4. THYROID THERAPY [Concomitant]

REACTIONS (1)
  - Drug ineffective [Unknown]
